FAERS Safety Report 6260678-7 (Version None)
Quarter: 2009Q3

REPORT INFORMATION
  Report Type: 
  Country: None (occurrence: None)
  Receive Date: 20090706
  Receipt Date: 20090622
  Transmission Date: 20100115
  Serious: Yes (Death, Hospitalization)
  Sender: FDA-Public Use
  Company Number: 1-18919178

PATIENT
  Age: 73 Year
  Sex: Male

DRUGS (2)
  1. CARBAMAZEPINE [Suspect]
     Indication: DIABETIC NEUROPATHY
     Dosage: ORAL
     Route: 048
  2. UNSPECIFIED ORAL MEDICATIONS [Concomitant]

REACTIONS (14)
  - ANAPLASTIC LARGE CELL LYMPHOMA T- AND NULL-CELL TYPES [None]
  - BLOOD LACTATE DEHYDROGENASE INCREASED [None]
  - BREATH SOUNDS ABNORMAL [None]
  - DRUG RASH WITH EOSINOPHILIA AND SYSTEMIC SYMPTOMS [None]
  - FATIGUE [None]
  - GENERAL PHYSICAL HEALTH DETERIORATION [None]
  - HYPONATRAEMIA [None]
  - LEUKOCYTOSIS [None]
  - MULTI-ORGAN DISORDER [None]
  - OEDEMA PERIPHERAL [None]
  - PLEURAL EFFUSION [None]
  - RENAL FAILURE ACUTE [None]
  - SOMNOLENCE [None]
  - WEIGHT DECREASED [None]
